FAERS Safety Report 22954048 (Version 3)
Quarter: 2023Q4

REPORT INFORMATION
  Report Type: Spontaneous
  Country: US (occurrence: US)
  Receive Date: 20230918
  Receipt Date: 20231019
  Transmission Date: 20240110
  Serious: No
  Sender: FDA-Public Use
  Company Number: US-SANOFI-01759367

PATIENT
  Age: 56 Year
  Sex: Female

DRUGS (2)
  1. DUPIXENT [Suspect]
     Active Substance: DUPILUMAB
     Indication: Asthma
     Dosage: 200 MG, 1X
     Route: 058
     Dates: start: 202308, end: 202308
  2. DUPIXENT [Suspect]
     Active Substance: DUPILUMAB
     Dosage: 200 MG, QOW
     Route: 058
     Dates: start: 20230905, end: 20230905

REACTIONS (8)
  - Fatigue [Not Recovered/Not Resolved]
  - Eye pain [Recovering/Resolving]
  - Eyelids pruritus [Recovering/Resolving]
  - Eye pruritus [Recovering/Resolving]
  - Conjunctivitis [Recovering/Resolving]
  - Eye irritation [Recovering/Resolving]
  - Arthralgia [Unknown]
  - Off label use [Unknown]

NARRATIVE: CASE EVENT DATE: 20230801
